FAERS Safety Report 22588049 (Version 4)
Quarter: 2024Q2

REPORT INFORMATION
  Report Type: Report from Study
  Country: US (occurrence: US)
  Receive Date: 20230612
  Receipt Date: 20240620
  Transmission Date: 20240716
  Serious: Yes (Other)
  Sender: FDA-Public Use
  Company Number: US-ABBVIE-5283128

PATIENT
  Age: 72 Year
  Sex: Female
  Weight: 69 kg

DRUGS (22)
  1. UBRELVY [Suspect]
     Active Substance: UBROGEPANT
     Indication: Headache
     Dosage: TIME INTERVAL: AS NECESSARY: 100 MG, TAKE 1 TABLET AS NEEDED AT ONSET OF HEADACHE, DO NOT EXCEED ...
     Route: 048
  2. CRESTOR [Concomitant]
     Active Substance: ROSUVASTATIN CALCIUM
     Indication: Ischaemic heart disease prophylaxis
     Dosage: 1 TABLET BY MOUTH EVERY MORNING, 5 MG TAB
  3. DESYREL [Concomitant]
     Active Substance: TRAZODONE HYDROCHLORIDE
     Indication: Sleep disorder therapy
     Dosage: TIME INTERVAL: AS NECESSARY: 1 TABLET TO 1 AND ONE-HALF TABLETS AT BEDTIME,  100 MG TAB
     Route: 048
  4. AJOVY [Concomitant]
     Active Substance: FREMANEZUMAB-VFRM
     Indication: Product used for unknown indication
     Dosage: AUTOINJECTOR 225 MG/1.5 ML
     Route: 058
  5. VITAMIN D3 [Concomitant]
     Active Substance: CHOLECALCIFEROL
     Indication: Product used for unknown indication
     Dosage: 50 MCG (2,000 UNIT)
  6. VANCOCIN [Concomitant]
     Active Substance: VANCOMYCIN HYDROCHLORIDE
     Indication: Product used for unknown indication
     Dosage: 125 MG CAP
  7. GLUCOPHAGE XR [Concomitant]
     Active Substance: METFORMIN HYDROCHLORIDE
     Indication: Diabetes mellitus
     Dosage: 3 TABLETS EVERY MORNING WITH A MEAL, 500 MG 24HR SR TAB
     Route: 048
  8. PRILOSEC [Concomitant]
     Active Substance: OMEPRAZOLE MAGNESIUM
     Indication: Gastrointestinal disorder
     Dosage: 2 CAPSULES EVERY MORNING 30 MINUTES BEFORE A MEAL,  20 MG CPDR SR CAP
     Route: 048
  9. LYRICA [Concomitant]
     Active Substance: PREGABALIN
     Indication: Pain management
     Dosage: 1 CAPSULE 2 TIMES A DAY,  75 MG CAP
     Route: 048
  10. TENUATE DOSPAN [Concomitant]
     Active Substance: DIETHYLPROPION HYDROCHLORIDE
     Indication: Weight decreased
     Dosage: 1 TABLET BY MOUTH DAILY MID-MORNING,  75 MG SR TAB
     Route: 048
  11. NORCO [Concomitant]
     Active Substance: ACETAMINOPHEN\HYDROCODONE BITARTRATE
     Indication: Pain
     Dosage: TIME INTERVAL: AS NECESSARY: 1 TABLET AT BEDTIME,  5-325 MG TAB
     Route: 048
  12. LIDEX [Concomitant]
     Active Substance: FLUOCINONIDE
     Indication: Product used for unknown indication
     Dosage: APPLY A THIN LAYER TO AFFECTED AREA(S) 2 TIMES A DAY, DO NOT APPLY TO FACE, NECK, GROIN, OR ARMPI...
  13. DIFICID [Concomitant]
     Active Substance: FIDAXOMICIN
     Indication: Product used for unknown indication
     Dosage: 200 MG, TAKE 1 TABLET BY MOUTH 2 TIMES A DAY FOR 5 DAYS, THEN TAKE 1 TABLET EVERY OTHER DAY FOR 2...
     Route: 048
  14. MAXALT-MLT [Concomitant]
     Active Substance: RIZATRIPTAN BENZOATE
     Indication: Headache
     Dosage: TIME INTERVAL: AS NECESSARY: 1 TABLET ON THE TONGUE,  10 MG RAP DIS TAB
  15. BENTYL [Concomitant]
     Active Substance: DICYCLOMINE HYDROCHLORIDE
     Indication: Muscle spasms
     Dosage: 1 CAPSULE BY MOUTH 3 TO 4 TIMES A DAY,  10 MG
     Route: 048
  16. INDERAL [Concomitant]
     Active Substance: PROPRANOLOL HYDROCHLORIDE
     Indication: Anxiety
     Dosage: TIME INTERVAL: AS NECESSARY: 1 TABLET 3 TIMES A DAY,  10 MG TAB
     Route: 048
  17. LIDOCARE [Concomitant]
     Indication: Product used for unknown indication
     Dosage: 1 PATCH TO SKIN ONCE A DAY REMOVE AFTER 12 HOURS,  4 % PTMD PATCH
  18. ONDANSETRON [Concomitant]
     Active Substance: ONDANSETRON
     Indication: Product used for unknown indication
     Dosage: TIME INTERVAL: AS NECESSARY: DISSOLVE 1 TABLET ON THE TONGUE EVERY 12 HOURS, 4 MG RAP DIS TAB
  19. CYMBALTA [Concomitant]
     Active Substance: DULOXETINE HYDROCHLORIDE
     Indication: Product used for unknown indication
     Dosage: 2 CAPSULES EVERY MORNING,  60 MG CPDR SR CAP
     Route: 048
  20. RINVOQ [Concomitant]
     Active Substance: UPADACITINIB
     Indication: Product used for unknown indication
     Dosage: 1 TABLET BY MOUTH DAILY,  45 MG 24HR SR TAB
  21. TOPAMAX [Concomitant]
     Active Substance: TOPIRAMATE
     Indication: Product used for unknown indication
     Dosage: 1 TABLET BY MOUTH DAILY,  25 MG TAB
  22. DERMA-SMOOTHE/FS [Concomitant]
     Active Substance: FLUOCINOLONE ACETONIDE
     Indication: Product used for unknown indication
     Dosage: 0.01 % SCALP OIL, MASSAGE ONTO WET SCALP THEN COVER SCALP AND LEAVE ON AT LEAST 4 HOURS THEN WASH...

REACTIONS (3)
  - Foot operation [Recovered/Resolved]
  - Drug ineffective [Recovered/Resolved]
  - Therapeutic product effect incomplete [Unknown]

NARRATIVE: CASE EVENT DATE: 20230506
